FAERS Safety Report 13957013 (Version 1)
Quarter: 2017Q3

REPORT INFORMATION
  Report Type: Other
  Country: GB (occurrence: ES)
  Receive Date: 20170912
  Receipt Date: 20170912
  Transmission Date: 20171128
  Serious: Yes (Hospitalization, Other)
  Sender: FDA-Public Use
  Company Number: ES-CLARIS PHARMASERVICES-2025891

PATIENT
  Age: 61 Year

DRUGS (11)
  1. IBRUTINIB [Suspect]
     Active Substance: IBRUTINIB
  2. ACYCLOVIR. [Concomitant]
     Active Substance: ACYCLOVIR
  3. NYSTATIN. [Concomitant]
     Active Substance: NYSTATIN
  4. FLUCONAZOLE. [Suspect]
     Active Substance: FLUCONAZOLE
     Indication: OROPHARYNGEAL CANDIDIASIS
  5. AMOXICILLIN/CLAVULANIC [Concomitant]
     Active Substance: AMOXICILLIN\CLAVULANIC ACID
  6. RITUXIMAB. [Concomitant]
     Active Substance: RITUXIMAB
  7. NATECAL [Concomitant]
     Active Substance: CALCIUM CARBONATE\CHOLECALCIFEROL
  8. LANTUS [Concomitant]
     Active Substance: INSULIN GLARGINE
  9. OMEPRAZOLE. [Concomitant]
     Active Substance: OMEPRAZOLE
  10. NEORRECORMON [Concomitant]
  11. ZYLORIC [Concomitant]
     Active Substance: ALLOPURINOL

REACTIONS (2)
  - Drug interaction [Unknown]
  - Cardiac failure [Unknown]
